FAERS Safety Report 9283653 (Version 1)
Quarter: 2013Q2

REPORT INFORMATION
  Report Type: Spontaneous
  Country: US (occurrence: US)
  Receive Date: 20130510
  Receipt Date: 20130510
  Transmission Date: 20140414
  Serious: Yes (Hospitalization)
  Sender: FDA-Public Use
  Company Number: US-GLAXOSMITHKLINE-A0898279A

PATIENT
  Age: 55 Year
  Sex: Female

DRUGS (1)
  1. ROSIGLITAZONE MALEATE [Suspect]
     Indication: DIABETES MELLITUS
     Route: 048

REACTIONS (8)
  - Myocardial infarction [Not Recovered/Not Resolved]
  - Cerebrovascular accident [Unknown]
  - Hypertension [Unknown]
  - Heart rate increased [Unknown]
  - Pain in extremity [Unknown]
  - Cardiac operation [Unknown]
  - Catheterisation cardiac [Unknown]
  - Stent placement [Unknown]
